FAERS Safety Report 11061022 (Version 1)
Quarter: 2015Q2

REPORT INFORMATION
  Report Type: Spontaneous
  Country: PL (occurrence: PL)
  Receive Date: 20150424
  Receipt Date: 20150424
  Transmission Date: 20150821
  Serious: Yes (Death, Hospitalization, Other)
  Sender: FDA-Public Use
  Company Number: PL-ROCHE-1567401

PATIENT
  Age: 52 Year
  Sex: Male

DRUGS (4)
  1. 5-FLUOROURACIL [Concomitant]
     Active Substance: FLUOROURACIL
     Indication: COLON CANCER
  2. LEUCOVORIN [Concomitant]
     Active Substance: LEUCOVORIN
     Indication: COLON CANCER
  3. OXALIPLATIN. [Concomitant]
     Active Substance: OXALIPLATIN
     Indication: COLON CANCER
  4. AVASTIN [Suspect]
     Active Substance: BEVACIZUMAB
     Indication: COLON CANCER
     Dosage: 14-DAY RHYTHM
     Route: 065

REACTIONS (12)
  - Abdominal pain [Unknown]
  - Proteinuria [Unknown]
  - Death [Fatal]
  - Gastrointestinal perforation [Unknown]
  - Hypertension [Unknown]
  - Epistaxis [Unknown]
  - C-reactive protein increased [Unknown]
  - Anaemia [Unknown]
  - Leukocytosis [Unknown]
  - Performance status decreased [Unknown]
  - Abdominal pain [Recovered/Resolved]
  - Peripheral sensory neuropathy [Unknown]
